FAERS Safety Report 11397348 (Version 1)
Quarter: 2015Q3

REPORT INFORMATION
  Report Type: Spontaneous
  Country: US (occurrence: US)
  Receive Date: 20150819
  Receipt Date: 20150819
  Transmission Date: 20151125
  Serious: No
  Sender: FDA-Public Use
  Company Number: US-MALLINCKRODT-T201500955

PATIENT

DRUGS (1)
  1. CONRAY [Suspect]
     Active Substance: IOTHALAMATE MEGLUMINE
     Indication: IMAGING PROCEDURE
     Dosage: 10 ML
     Route: 058

REACTIONS (3)
  - No adverse event [Unknown]
  - Wrong drug administered [None]
  - Incorrect route of drug administration [Unknown]
